FAERS Safety Report 4785630-X (Version None)
Quarter: 2005Q4

REPORT INFORMATION
  Report Type: 
  Country: None (occurrence: None)
  Receive Date: 20051003
  Receipt Date: 20050831
  Transmission Date: 20060501
  Serious: Yes (Hospitalization)
  Sender: FDA-Public Use
  Company Number: AU-AMGEN-US148678

PATIENT
  Sex: Female

DRUGS (10)
  1. CINACALCET [Suspect]
     Indication: HYPERPARATHYROIDISM SECONDARY
     Dates: start: 20050715
  2. AVAPRO [Suspect]
  3. COVERSYL [Concomitant]
  4. ZOCOR [Concomitant]
  5. ROCALTROL [Concomitant]
  6. NEXIUM [Concomitant]
  7. CALTRATE [Concomitant]
  8. FERROUS SULFATE [Concomitant]
  9. CALCIFEROL [Concomitant]
  10. LEVONORGESTREL [Concomitant]

REACTIONS (3)
  - CHEST DISCOMFORT [None]
  - ELECTROLYTE IMBALANCE [None]
  - MUSCLE SPASMS [None]
